FAERS Safety Report 21714929 (Version 1)
Quarter: 2022Q4

REPORT INFORMATION
  Report Type: Spontaneous
  Country: IT (occurrence: IT)
  Receive Date: 20221212
  Receipt Date: 20221212
  Transmission Date: 20230113
  Serious: Yes (Other)
  Sender: FDA-Public Use
  Company Number: IT-TEVA-2022-IT-2828586

PATIENT
  Age: 40 Year
  Sex: Female

DRUGS (9)
  1. PEMBROLIZUMAB [Suspect]
     Active Substance: PEMBROLIZUMAB
     Indication: Triple negative breast cancer
     Dosage: 200MG AS STRENGTH AND AS TOTAL DAILY DOSE, EVERY 3 WEEKS
     Route: 042
     Dates: start: 20220831, end: 20220921
  2. PEMBROLIZUMAB [Suspect]
     Active Substance: PEMBROLIZUMAB
     Indication: Inflammatory carcinoma of the breast
  3. PEMBROLIZUMAB [Suspect]
     Active Substance: PEMBROLIZUMAB
     Indication: Breast cancer female
  4. PACLITAXEL [Suspect]
     Active Substance: PACLITAXEL
     Indication: Inflammatory carcinoma of the breast
     Dosage: 116.8 MILLIGRAM DAILY; TOTAL DAILY DOSE, WEEKLY 80MG/M2
     Route: 042
     Dates: start: 20220831, end: 20221005
  5. PACLITAXEL [Suspect]
     Active Substance: PACLITAXEL
     Indication: Breast cancer female
  6. PACLITAXEL [Suspect]
     Active Substance: PACLITAXEL
     Indication: Triple negative breast cancer
  7. CARBOPLATIN [Suspect]
     Active Substance: CARBOPLATIN
     Indication: Triple negative breast cancer
     Dosage: 220 MILLIGRAM DAILY; 1,5 MG/AUC, DAILY DOSE, WEEKLY
     Route: 042
     Dates: start: 20220831, end: 20221005
  8. CARBOPLATIN [Suspect]
     Active Substance: CARBOPLATIN
     Indication: Inflammatory carcinoma of the breast
  9. CARBOPLATIN [Suspect]
     Active Substance: CARBOPLATIN
     Indication: Breast cancer female

REACTIONS (1)
  - Neutropenia [Recovered/Resolved]

NARRATIVE: CASE EVENT DATE: 20220101
